FAERS Safety Report 9767526 (Version 2)
Quarter: 2013Q4

REPORT INFORMATION
  Report Type: Spontaneous
  Country: US (occurrence: None)
  Receive Date: 20130827
  Receipt Date: 20131008
  Transmission Date: 20140711
  Serious: Yes (Hospitalization, Other)
  Sender: FDA-Public Use
  Company Number: ACO_36413_2013

PATIENT
  Age: 42 Year
  Sex: Female
  Weight: 83.9 kg

DRUGS (4)
  1. AMPYRA (DALFAMPRIDINE) TABLET, 10MG [Suspect]
     Indication: GAIT DISTURBANCE
     Route: 048
     Dates: start: 20130521, end: 20130521
  2. NIFEDIPINE (NIFEDIPINE) (NIFEDIPINE) [Concomitant]
  3. POTASSIUM (POTASSIUM BICARBONATE, POTASSIUM CHLORIDE) [Concomitant]
  4. VITAMIN D3 (COLECALIFEROL) [Concomitant]

REACTIONS (3)
  - Convulsion [None]
  - Unresponsive to stimuli [None]
  - Tremor [None]
